FAERS Safety Report 10209344 (Version 1)
Quarter: 2014Q2

REPORT INFORMATION
  Report Type: Report from Study
  Country: US (occurrence: US)
  Receive Date: 20140531
  Receipt Date: 20140531
  Transmission Date: 20141212
  Serious: Yes (Other)
  Sender: FDA-Public Use
  Company Number: US-ABBVIE-14P-163-1241094-00

PATIENT
  Sex: Female

DRUGS (1)
  1. KALETRA 200/50 [Suspect]
     Indication: HIV INFECTION
     Dates: start: 20090601

REACTIONS (3)
  - Fall [Recovered/Resolved]
  - Rib fracture [Unknown]
  - Pain [Unknown]
